FAERS Safety Report 18105647 (Version 6)
Quarter: 2020Q4

REPORT INFORMATION
  Report Type: Spontaneous
  Country: US (occurrence: US)
  Receive Date: 20200804
  Receipt Date: 20201228
  Transmission Date: 20210113
  Serious: Yes (Hospitalization, Other)
  Sender: FDA-Public Use
  Company Number: NVSC2020US216180

PATIENT
  Age: 30 Year
  Sex: Female

DRUGS (2)
  1. ZOFRAN [Suspect]
     Active Substance: ONDANSETRON HYDROCHLORIDE
     Indication: MORNING SICKNESS
     Dosage: UNK
     Route: 042
     Dates: start: 201101, end: 201101
  2. ZOFRAN [Suspect]
     Active Substance: ONDANSETRON HYDROCHLORIDE
     Indication: MORNING SICKNESS
     Dosage: 08 MG, QD
     Route: 048
     Dates: start: 201101, end: 201108

REACTIONS (19)
  - Premature delivery [Unknown]
  - Nasopharyngitis [Unknown]
  - Shortened cervix [Unknown]
  - Dysuria [Unknown]
  - Threatened labour [Recovered/Resolved]
  - Pain [Not Recovered/Not Resolved]
  - Abdominal pain [Unknown]
  - Anaemia [Unknown]
  - Product use in unapproved indication [Unknown]
  - Emotional distress [Unknown]
  - Anhedonia [Unknown]
  - Oxygen saturation decreased [Unknown]
  - Normal newborn [Unknown]
  - Pulmonary oedema [Recovered/Resolved]
  - Maternal exposure during pregnancy [Unknown]
  - Anxiety [Unknown]
  - Dehydration [Unknown]
  - Multiple pregnancy [Unknown]
  - Injury [Unknown]

NARRATIVE: CASE EVENT DATE: 20110805
